FAERS Safety Report 7548694-6 (Version None)
Quarter: 2011Q2

REPORT INFORMATION
  Report Type: 
  Country: None (occurrence: None)
  Receive Date: 20110608
  Receipt Date: 20110524
  Transmission Date: 20111010
  Serious: Yes (Disabling, Other)
  Sender: FDA-Public Use
  Company Number: AUR-APL-2011-02085

PATIENT
  Age: 46 Year
  Sex: Female
  Weight: 112.93 kg

DRUGS (6)
  1. GABAPENTIN [Suspect]
     Indication: MIGRAINE
     Dosage: 800 MG-QID, ORAL
     Route: 048
     Dates: start: 20100101
  2. GABAPENTIN [Suspect]
     Indication: FIBROMYALGIA
     Dosage: 800 MG-QID, ORAL
     Route: 048
     Dates: start: 20100101
  3. VENLAFAXINE [Suspect]
     Indication: DEPRESSION
     Dosage: 300MG, DAILY, ORAL
     Route: 048
     Dates: start: 20070101
  4. GEODON [Suspect]
     Indication: MANIA
     Dosage: 160 MG, DAILY, ORAL
     Route: 048
     Dates: start: 20070101
  5. METFORMIN HCL [Concomitant]
  6. ALPRAZOLAM [Suspect]
     Indication: ANXIETY DISORDER
     Dosage: 2 MG, QID, ORAL
     Route: 048
     Dates: start: 20090101

REACTIONS (8)
  - ANXIETY DISORDER [None]
  - URINARY INCONTINENCE [None]
  - FALL [None]
  - FOOT FRACTURE [None]
  - DRUG INTERACTION [None]
  - MENTAL DISORDER [None]
  - FIBROMYALGIA [None]
  - BLOOD SODIUM DECREASED [None]
